FAERS Safety Report 9321920 (Version 2)
Quarter: 2013Q2

REPORT INFORMATION
  Report Type: Spontaneous
  Country: US (occurrence: US)
  Receive Date: 20130531
  Receipt Date: 20130618
  Transmission Date: 20140414
  Serious: Yes (Congenital Anomaly, Other)
  Sender: FDA-Public Use
  Company Number: US-PFIZER INC-2013164416

PATIENT
  Sex: Male

DRUGS (4)
  1. ZOLOFT [Suspect]
     Dosage: UNK
     Route: 064
     Dates: start: 199909, end: 200906
  2. TYLENOL [Concomitant]
     Dosage: UNK
     Route: 064
  3. ONE-A-DAY WOMEN^S VITAMINS [Concomitant]
     Dosage: UNK
     Route: 064
  4. CALTRATE [Concomitant]
     Dosage: UNK
     Route: 064

REACTIONS (5)
  - Maternal exposure during pregnancy [Unknown]
  - Cleft palate [Unknown]
  - Atrial septal defect [Unknown]
  - Autism [Unknown]
  - Premature baby [Unknown]
